FAERS Safety Report 11237427 (Version 4)
Quarter: 2015Q4

REPORT INFORMATION
  Report Type: Report from Study
  Country: US (occurrence: US)
  Receive Date: 20150703
  Receipt Date: 20151204
  Transmission Date: 20160304
  Serious: Yes (Hospitalization)
  Sender: FDA-Public Use
  Company Number: US-BIOGENIDEC-2015BI090765

PATIENT
  Age: 49 Year
  Sex: Female

DRUGS (2)
  1. TYSABRI [Suspect]
     Active Substance: NATALIZUMAB
     Indication: MULTIPLE SCLEROSIS
     Route: 042
  2. TYSABRI [Suspect]
     Active Substance: NATALIZUMAB
     Indication: MULTIPLE SCLEROSIS
     Route: 042
     Dates: start: 20130226, end: 2015

REACTIONS (12)
  - Mammoplasty [Recovered/Resolved]
  - Stress [Not Recovered/Not Resolved]
  - Incision site erythema [Unknown]
  - Incision site inflammation [Unknown]
  - Incision site pain [Unknown]
  - Headache [Recovered/Resolved]
  - Adverse event [Unknown]
  - Meningitis viral [Recovered/Resolved]
  - Pineal gland cyst [Not Recovered/Not Resolved]
  - Impaired healing [Unknown]
  - Panic attack [Recovered/Resolved]
  - Burning sensation [Unknown]

NARRATIVE: CASE EVENT DATE: 20150520
